FAERS Safety Report 22636595 (Version 1)
Quarter: 2023Q2

REPORT INFORMATION
  Report Type: Spontaneous
  Country: CN (occurrence: CN)
  Receive Date: 20230623
  Receipt Date: 20230623
  Transmission Date: 20230721
  Serious: Yes (Other)
  Sender: FDA-Public Use
  Company Number: CN-WOODWARD-2023-CN-000359

PATIENT
  Age: 36 Year
  Sex: Female

DRUGS (4)
  1. RABEPRAZOLE SODIUM [Suspect]
     Active Substance: RABEPRAZOLE SODIUM
     Indication: Helicobacter infection
     Dosage: (20 MG,1 D)
     Route: 048
     Dates: start: 20230531, end: 20230606
  2. CLARITHROMYCIN [Suspect]
     Active Substance: CLARITHROMYCIN
     Dosage: (500 MG,12 HR)
     Route: 048
     Dates: start: 20230531, end: 20230607
  3. AMOXICILLIN [Suspect]
     Active Substance: AMOXICILLIN
     Dosage: (1 GM,12 HR)
     Route: 048
     Dates: start: 20230531, end: 20230608
  4. BISMUTH SUBCITRATE [Suspect]
     Active Substance: BISMUTH SUBCITRATE
     Dosage: (240 MG,12 HR)
     Route: 048
     Dates: start: 20230531, end: 20230610

REACTIONS (1)
  - Dermatitis allergic [Recovering/Resolving]

NARRATIVE: CASE EVENT DATE: 20230601
